FAERS Safety Report 23125014 (Version 1)
Quarter: 2023Q4

REPORT INFORMATION
  Report Type: Spontaneous
  Country: US (occurrence: US)
  Receive Date: 20231030
  Receipt Date: 20231030
  Transmission Date: 20240110
  Serious: No
  Sender: FDA-Public Use
  Company Number: US-EPIHEALTH-2023-US-007298

PATIENT
  Age: 30 Year
  Sex: Female
  Weight: 68.04 kg

DRUGS (1)
  1. RHOFADE [Suspect]
     Active Substance: OXYMETAZOLINE HYDROCHLORIDE
     Indication: Rosacea
     Dosage: APPLIED A PEA SIZED AMOUNT TO HER CHEEKS
     Route: 061
     Dates: start: 20230116, end: 20230323

REACTIONS (2)
  - Application site hypoaesthesia [Not Recovered/Not Resolved]
  - Application site paraesthesia [Not Recovered/Not Resolved]

NARRATIVE: CASE EVENT DATE: 20230116
